FAERS Safety Report 16053724 (Version 3)
Quarter: 2019Q3

REPORT INFORMATION
  Report Type: Spontaneous
  Country: US (occurrence: US)
  Receive Date: 20190308
  Receipt Date: 20190723
  Transmission Date: 20191004
  Serious: Yes (Hospitalization, Other)
  Sender: FDA-Public Use
  Company Number: US-ASTRAZENECA-2019SE36219

PATIENT
  Age: 14574 Day
  Sex: Female

DRUGS (35)
  1. FAMOTIDINE. [Concomitant]
     Active Substance: FAMOTIDINE
  2. NEXIUM [Suspect]
     Active Substance: ESOMEPRAZOLE MAGNESIUM
     Route: 048
     Dates: start: 20170612
  3. LEXAPRO [Concomitant]
     Active Substance: ESCITALOPRAM OXALATE
  4. BENTYL [Concomitant]
     Active Substance: DICYCLOMINE HYDROCHLORIDE
  5. ABILIFY [Concomitant]
     Active Substance: ARIPIPRAZOLE
  6. PROTONIX [Concomitant]
     Active Substance: PANTOPRAZOLE SODIUM
  7. TORADOL [Concomitant]
     Active Substance: KETOROLAC TROMETHAMINE
  8. ZANAFLEX [Concomitant]
     Active Substance: TIZANIDINE HYDROCHLORIDE
  9. XARELTO [Concomitant]
     Active Substance: RIVAROXABAN
  10. CODEINE [Concomitant]
     Active Substance: CODEINE
  11. MIRALAX [Concomitant]
     Active Substance: POLYETHYLENE GLYCOL 3350
  12. NEXIUM [Suspect]
     Active Substance: ESOMEPRAZOLE MAGNESIUM
     Route: 048
     Dates: start: 20070612
  13. OMNICEF [Concomitant]
     Active Substance: CEFDINIR
  14. AMBIEN [Concomitant]
     Active Substance: ZOLPIDEM TARTRATE
  15. VIGAMOX [Concomitant]
     Active Substance: MOXIFLOXACIN HYDROCHLORIDE
  16. NYSTATIN. [Concomitant]
     Active Substance: NYSTATIN
  17. LISINOPRIL. [Concomitant]
     Active Substance: LISINOPRIL
  18. ALPRAZOLAM. [Concomitant]
     Active Substance: ALPRAZOLAM
  19. NEXIUM [Suspect]
     Active Substance: ESOMEPRAZOLE MAGNESIUM
     Route: 048
     Dates: start: 20141016
  20. BUPROPION. [Concomitant]
     Active Substance: BUPROPION
  21. OXYCODONE [Concomitant]
     Active Substance: OXYCODONE
  22. TYLENOL [Concomitant]
     Active Substance: ACETAMINOPHEN
  23. CEPHALEXIN. [Concomitant]
     Active Substance: CEPHALEXIN
  24. VALTREX [Concomitant]
     Active Substance: VALACYCLOVIR HYDROCHLORIDE
  25. TRAMADOL. [Concomitant]
     Active Substance: TRAMADOL
  26. DICLOFENAC [Concomitant]
     Active Substance: DICLOFENAC
  27. MORPHINE [Concomitant]
     Active Substance: MORPHINE
  28. FLECTOR [Concomitant]
     Active Substance: DICLOFENAC EPOLAMINE
  29. ULTRAM [Concomitant]
     Active Substance: TRAMADOL HYDROCHLORIDE
  30. DOXEPIN [Concomitant]
     Active Substance: DOXEPIN
  31. CETRIZINE [Concomitant]
     Active Substance: CETIRIZINE HYDROCHLORIDE
  32. TRAZODONE [Concomitant]
     Active Substance: TRAZODONE HYDROCHLORIDE
  33. BENETHAMINE PENICILLIN [Concomitant]
     Active Substance: BENETHAMINE PENICILLIN
  34. CYMBALTA [Concomitant]
     Active Substance: DULOXETINE HYDROCHLORIDE
  35. DEPAKOTE [Concomitant]
     Active Substance: DIVALPROEX SODIUM

REACTIONS (3)
  - Chronic kidney disease [Unknown]
  - Acute kidney injury [Unknown]
  - Renal failure [Unknown]

NARRATIVE: CASE EVENT DATE: 20120609
